FAERS Safety Report 24025763 (Version 2)
Quarter: 2024Q2

REPORT INFORMATION
  Report Type: Spontaneous
  Country: PE (occurrence: PE)
  Receive Date: 20240628
  Receipt Date: 20240628
  Transmission Date: 20240716
  Serious: No
  Sender: FDA-Public Use
  Company Number: PE-ROCHE-3409669

PATIENT

DRUGS (1)
  1. ALECENSA [Suspect]
     Active Substance: ALECTINIB HYDROCHLORIDE
     Indication: Non-small cell lung cancer
     Route: 065
     Dates: start: 20230731

REACTIONS (4)
  - Face oedema [Unknown]
  - Asthenia [Unknown]
  - Myalgia [Unknown]
  - Eyelid oedema [Unknown]
